FAERS Safety Report 7064443-2 (Version None)
Quarter: 2010Q4

REPORT INFORMATION
  Report Type: 
  Country: None (occurrence: None)
  Receive Date: 20101027
  Receipt Date: 20101022
  Transmission Date: 20110411
  Serious: Yes (Hospitalization)
  Sender: FDA-Public Use
  Company Number: FR-SANOFI-AVENTIS-2010SA064684

PATIENT
  Sex: Male

DRUGS (2)
  1. ELOXATIN [Suspect]
     Indication: COLON CANCER
     Route: 042
     Dates: start: 20100713, end: 20100914
  2. TOMUDEX [Suspect]
     Indication: COLON CANCER
     Route: 042
     Dates: start: 20100713, end: 20100914

REACTIONS (1)
  - CYTOLYTIC HEPATITIS [None]
